FAERS Safety Report 16493887 (Version 1)
Quarter: 2019Q2

REPORT INFORMATION
  Report Type: Spontaneous
  Country: AT (occurrence: AT)
  Receive Date: 20190628
  Receipt Date: 20190628
  Transmission Date: 20190711
  Serious: Yes (Hospitalization)
  Sender: FDA-Public Use
  Company Number: AT-TEVA-2019-AT-1070146

PATIENT
  Age: 53 Year
  Sex: Female
  Weight: 64 kg

DRUGS (2)
  1. EBETAXEL [Suspect]
     Active Substance: PACLITAXEL
     Indication: CHEMOTHERAPY
     Dosage: I.V.210 MG EBETAXEL 14:30
     Route: 042
     Dates: start: 20190612, end: 20190612
  2. CARBOPLATIN. [Suspect]
     Active Substance: CARBOPLATIN
     Indication: CHEMOTHERAPY
     Dates: start: 20190612, end: 20190612

REACTIONS (2)
  - Circulatory collapse [Recovered/Resolved]
  - Chest discomfort [Recovered/Resolved]

NARRATIVE: CASE EVENT DATE: 20190612
